FAERS Safety Report 5618297-9 (Version None)
Quarter: 2008Q1

REPORT INFORMATION
  Report Type: 
  Country: None (occurrence: None)
  Receive Date: 20080206
  Receipt Date: 20080206
  Transmission Date: 20080703
  Serious: Yes (Other)
  Sender: FDA-Public Use
  Company Number: None

PATIENT
  Sex: Male

DRUGS (2)
  1. DECONAMINE SR -GENERIC-  120-8MG [Suspect]
     Indication: CHRONIC OBSTRUCTIVE PULMONARY DISEASE
     Dosage: 120-8MG  1T PO BID PO  (DATES OF USE: 15-20 YEARS AGO)
     Route: 048
  2. DECONAMINE SR -GENERIC-  120-8MG [Suspect]
     Indication: SINUSITIS
     Dosage: 120-8MG  1T PO BID PO  (DATES OF USE: 15-20 YEARS AGO)
     Route: 048

REACTIONS (4)
  - EPISTAXIS [None]
  - MUCOUS MEMBRANE DISORDER [None]
  - NASAL DRYNESS [None]
  - PHARMACEUTICAL PRODUCT COMPLAINT [None]
